FAERS Safety Report 22886823 (Version 2)
Quarter: 2023Q4

REPORT INFORMATION
  Report Type: Spontaneous
  Country: US (occurrence: US)
  Receive Date: 20230831
  Receipt Date: 20231019
  Transmission Date: 20240110
  Serious: No
  Sender: FDA-Public Use
  Company Number: US-BIOVITRUM-2023-US-014103

PATIENT
  Age: 23 Year
  Sex: Female

DRUGS (4)
  1. KINERET [Suspect]
     Active Substance: ANAKINRA
     Indication: Still^s disease
     Dosage: 100 MG DAILY
  2. KINERET [Suspect]
     Active Substance: ANAKINRA
     Dosage: 100 MG DAILY
     Route: 058
     Dates: start: 20230804
  3. KINERET [Suspect]
     Active Substance: ANAKINRA
     Dates: start: 20230807
  4. KINERET [Suspect]
     Active Substance: ANAKINRA
     Dosage: 100 MG DAILY?INTRAMUSCULAR, INNERTHIGH, BUTTOCK, AND LOWER BACK PAIN
     Route: 030
     Dates: start: 20230808

REACTIONS (9)
  - Off label use [Not Recovered/Not Resolved]
  - Injection site pain [Unknown]
  - Injection site pruritus [Unknown]
  - Injection site scar [Unknown]
  - Injection site bruising [Unknown]
  - Pruritus [Unknown]
  - Arthralgia [Unknown]
  - Injection site exfoliation [Unknown]
  - Skin hyperpigmentation [Unknown]

NARRATIVE: CASE EVENT DATE: 20230804
